FAERS Safety Report 12993760 (Version 1)
Quarter: 2016Q4

REPORT INFORMATION
  Report Type: Spontaneous
  Country: US (occurrence: US)
  Receive Date: 20161202
  Receipt Date: 20161202
  Transmission Date: 20170207
  Serious: Yes (Disabling, Other)
  Sender: FDA-Public Use
  Company Number: None

PATIENT
  Age: 59 Year
  Sex: Female
  Weight: 52.21 kg

DRUGS (16)
  1. PROAIR HFA [Concomitant]
     Active Substance: ALBUTEROL SULFATE
  2. MELOXICAM. [Concomitant]
     Active Substance: MELOXICAM
  3. LIDOCAINE. [Concomitant]
     Active Substance: LIDOCAINE
  4. ALLEGRA [Suspect]
     Active Substance: FEXOFENADINE HYDROCHLORIDE
  5. CHANTIX [Suspect]
     Active Substance: VARENICLINE TARTRATE
  6. EXECEDRIN [Concomitant]
  7. HERBAL TEAS [Concomitant]
     Active Substance: HERBALS
  8. VALIUM [Concomitant]
     Active Substance: DIAZEPAM
  9. SOMA [Concomitant]
     Active Substance: CARISOPRODOL
  10. FLONASE [Concomitant]
     Active Substance: FLUTICASONE PROPIONATE
  11. PEPCID [Concomitant]
     Active Substance: FAMOTIDINE
  12. LAMOTRIGENE [Concomitant]
     Active Substance: LAMOTRIGINE
  13. MS CONTIN [Concomitant]
     Active Substance: MORPHINE SULFATE
  14. PERCOCET [Concomitant]
     Active Substance: ACETAMINOPHEN\OXYCODONE HYDROCHLORIDE
  15. AMLODIPINE [Concomitant]
     Active Substance: AMLODIPINE BESYLATE
  16. BENADRYL [Concomitant]
     Active Substance: DIPHENHYDRAMINE HYDROCHLORIDE

REACTIONS (6)
  - Appetite disorder [None]
  - Pruritus [None]
  - Blister [None]
  - Rash [None]
  - Psoriatic arthropathy [None]
  - Vomiting [None]
